FAERS Safety Report 9195285 (Version 1)
Quarter: 2013Q1

REPORT INFORMATION
  Report Type: Spontaneous
  Country: US (occurrence: US)
  Receive Date: 20130328
  Receipt Date: 20130328
  Transmission Date: 20140127
  Serious: No
  Sender: FDA-Public Use
  Company Number: US-ALLERGAN-1208406US

PATIENT
  Age: 68 Year
  Sex: Female

DRUGS (5)
  1. COMBIGAN[R] [Suspect]
     Indication: INTRAOCULAR PRESSURE TEST
     Dosage: 1 GTT, UNK
     Route: 047
  2. LUMIGAN [Suspect]
     Indication: INTRAOCULAR PRESSURE TEST
     Dosage: 1 GTT, QHS
     Route: 047
  3. AZOPT [Suspect]
     Indication: INTRAOCULAR PRESSURE TEST
     Dosage: 1 GTT, TID
     Route: 047
  4. GENTILE [Concomitant]
     Indication: DRY EYE
  5. GLUCOSAMINE [Concomitant]
     Indication: ARTHRITIS

REACTIONS (7)
  - Abdominal discomfort [Unknown]
  - Decreased appetite [Unknown]
  - Sinus congestion [Unknown]
  - Fatigue [Unknown]
  - Stress [Unknown]
  - Eye disorder [Unknown]
  - Intraocular pressure increased [Unknown]
